FAERS Safety Report 9777784 (Version 2)
Quarter: 2014Q1

REPORT INFORMATION
  Report Type: Spontaneous
  Country: US (occurrence: US)
  Receive Date: 20131223
  Receipt Date: 20140206
  Transmission Date: 20141002
  Serious: No
  Sender: FDA-Public Use
  Company Number: US-BIOGENIDEC-2013BI119250

PATIENT
  Age: 53 Year
  Sex: Female

DRUGS (1)
  1. TYSABRI [Suspect]
     Indication: MULTIPLE SCLEROSIS
     Route: 042
     Dates: start: 20130924

REACTIONS (9)
  - Abnormal dreams [Unknown]
  - Stomatitis [Recovered/Resolved]
  - Anxiety [Unknown]
  - Nervousness [Recovered/Resolved]
  - Hypoaesthesia [Not Recovered/Not Resolved]
  - Tongue ulceration [Recovered/Resolved]
  - Malaise [Recovered/Resolved]
  - Nasopharyngitis [Unknown]
  - Fatigue [Recovered/Resolved]
